FAERS Safety Report 4659555-4 (Version None)
Quarter: 2005Q2

REPORT INFORMATION
  Report Type: 
  Country: None (occurrence: None)
  Receive Date: 20050510
  Receipt Date: 20050427
  Transmission Date: 20051028
  Serious: Yes (Hospitalization)
  Sender: FDA-Public Use
  Company Number: 2005062127

PATIENT
  Age: 37 Year
  Sex: Male
  Weight: 71 kg

DRUGS (4)
  1. ZIPRASIDONE                                                      (ZIPR [Suspect]
     Indication: SCHIZOPHRENIA
     Dosage: 40 MG (20 MG, 2 IN 1 D), ORAL
     Route: 048
     Dates: start: 20050315
  2. FLUNITRAZEPAM [Concomitant]
  3. HALOPERIDOL [Concomitant]
  4. TRIHEXYPHENIDYL HCL [Concomitant]

REACTIONS (12)
  - ASTHENIA [None]
  - CONDITION AGGRAVATED [None]
  - DIZZINESS [None]
  - FALL [None]
  - GAIT DISTURBANCE [None]
  - HALLUCINATION, AUDITORY [None]
  - HEADACHE [None]
  - HYPOTENSION [None]
  - LOSS OF CONSCIOUSNESS [None]
  - PSYCHIATRIC SYMPTOM [None]
  - SYNCOPE [None]
  - VERTIGO [None]
